FAERS Safety Report 14284423 (Version 1)
Quarter: 2017Q4

REPORT INFORMATION
  Report Type: Spontaneous
  Country: US (occurrence: US)
  Receive Date: 20171214
  Receipt Date: 20171214
  Transmission Date: 20180321
  Serious: Yes (Hospitalization)
  Sender: FDA-Public Use
  Company Number: None

PATIENT
  Age: 66 Year
  Sex: Female
  Weight: 78.6 kg

DRUGS (1)
  1. YERVOY [Suspect]
     Active Substance: IPILIMUMAB
     Indication: MALIGNANT MELANOMA
     Dates: start: 20171114, end: 20171114

REACTIONS (6)
  - Nausea [None]
  - Diarrhoea [None]
  - Dehydration [None]
  - Vomiting [None]
  - Drug dose omission [None]
  - Intestinal perforation [None]

NARRATIVE: CASE EVENT DATE: 20171205
